FAERS Safety Report 19104454 (Version 2)
Quarter: 2022Q1

REPORT INFORMATION
  Report Type: Spontaneous
  Country: US (occurrence: None)
  Receive Date: 20210407
  Receipt Date: 20220225
  Transmission Date: 20220423
  Serious: Yes (Death, Other)
  Sender: FDA-Public Use
  Company Number: 2021A263781

PATIENT
  Age: 857 Month
  Sex: Male
  Weight: 78 kg

DRUGS (25)
  1. PRILOSEC OTC [Suspect]
     Active Substance: OMEPRAZOLE MAGNESIUM
     Indication: Gastrooesophageal reflux disease
     Dosage: FOR VARIOUS DATES AND YEARS BEGINNING IN OR PRIOR TO
     Route: 048
  2. PRILOSEC OTC [Suspect]
     Active Substance: OMEPRAZOLE MAGNESIUM
     Indication: Gastrooesophageal reflux disease
     Route: 048
     Dates: start: 2017
  3. PRILOSEC [Suspect]
     Active Substance: OMEPRAZOLE MAGNESIUM
     Indication: Gastrooesophageal reflux disease
     Dosage: 20.0MG UNKNOWN
     Route: 048
     Dates: start: 2009, end: 2019
  4. PRILOSEC [Suspect]
     Active Substance: OMEPRAZOLE MAGNESIUM
     Indication: Gastrooesophageal reflux disease
     Dosage: GENERIC20.0MG UNKNOWN
     Route: 065
     Dates: start: 20090111
  5. NEXIUM 24HR [Suspect]
     Active Substance: ESOMEPRAZOLE MAGNESIUM
     Indication: Gastrooesophageal reflux disease
     Route: 048
     Dates: start: 2009, end: 2019
  6. LANSOPRAZOLE [Suspect]
     Active Substance: LANSOPRAZOLE
     Indication: Gastrooesophageal reflux disease
     Dosage: GENERIC30.0MG UNKNOWN
     Route: 065
     Dates: start: 20190307
  7. PREVACID 24 HR [Suspect]
     Active Substance: LANSOPRAZOLE
     Indication: Gastrooesophageal reflux disease
     Route: 065
     Dates: start: 2009, end: 2019
  8. LISINOPRIL [Concomitant]
     Active Substance: LISINOPRIL
     Indication: Blood pressure abnormal
  9. PEPCID [Concomitant]
     Active Substance: FAMOTIDINE
  10. ZANTAC [Concomitant]
     Active Substance: RANITIDINE HYDROCHLORIDE
  11. TAGAMET [Concomitant]
     Active Substance: CIMETIDINE
  12. AMOXICILLIN\CLAVULANATE POTASSIUM [Concomitant]
     Active Substance: AMOXICILLIN\CLAVULANATE POTASSIUM
  13. DIOVAN [Concomitant]
     Active Substance: VALSARTAN
  14. DEXAMETHASONE [Concomitant]
     Active Substance: DEXAMETHASONE
  15. LEUCOVORIN [Concomitant]
     Active Substance: LEUCOVORIN
  16. OXALIPLATIN [Concomitant]
     Active Substance: OXALIPLATIN
  17. PALONOSETRON [Concomitant]
     Active Substance: PALONOSETRON
  18. CARVEDILOL [Concomitant]
     Active Substance: CARVEDILOL
  19. CIPROFLOXACIN [Concomitant]
     Active Substance: CIPROFLOXACIN
  20. METRONIDAZOLE [Concomitant]
     Active Substance: METRONIDAZOLE
  21. SODIUM CHLORIDE [Concomitant]
     Active Substance: SODIUM CHLORIDE
  22. SIMETHICONE (DIMETHICONE) [Concomitant]
     Active Substance: DIMETHICONE
  23. ONDANSETRON [Concomitant]
     Active Substance: ONDANSETRON
  24. LEVAQUIN [Concomitant]
     Active Substance: LEVOFLOXACIN
  25. PROCHLORPERAZINE [Concomitant]
     Active Substance: PROCHLORPERAZINE

REACTIONS (7)
  - Enterococcal infection [Fatal]
  - Spontaneous bacterial peritonitis [Fatal]
  - Multiple organ dysfunction syndrome [Fatal]
  - Acute kidney injury [Unknown]
  - Gastric cancer [Unknown]
  - Renal failure [Unknown]
  - Rebound acid hypersecretion [Unknown]

NARRATIVE: CASE EVENT DATE: 20180101
